FAERS Safety Report 4351353-4 (Version None)
Quarter: 2004Q2

REPORT INFORMATION
  Report Type: 
  Country: None (occurrence: None)
  Receive Date: 20040428
  Receipt Date: 20040408
  Transmission Date: 20050107
  Serious: Yes (Other)
  Sender: FDA-Public Use
  Company Number: USA040464414

PATIENT
  Age: 31 Year
  Sex: Female
  Weight: 55 kg

DRUGS (2)
  1. HUMALOG [Suspect]
     Indication: DIABETES MELLITUS
     Dates: start: 20010101
  2. PREDNISONE [Concomitant]

REACTIONS (3)
  - PANCREATIC INSUFFICIENCY [None]
  - RENAL FAILURE [None]
  - RETINOPATHY [None]
